FAERS Safety Report 23154792 (Version 1)
Quarter: 2023Q4

REPORT INFORMATION
  Report Type: Spontaneous
  Country: GR (occurrence: GR)
  Receive Date: 20231107
  Receipt Date: 20231107
  Transmission Date: 20240109
  Serious: No
  Sender: FDA-Public Use
  Company Number: GR-GLAXOSMITHKLINE-GR2023EME038951

PATIENT
  Sex: Male

DRUGS (1)
  1. DUTASTERIDE [Suspect]
     Active Substance: DUTASTERIDE
     Dosage: 0,5MG 3X10
     Route: 065

REACTIONS (3)
  - Oral discomfort [Unknown]
  - Oral pain [Unknown]
  - Product complaint [Unknown]
